FAERS Safety Report 7737412-4 (Version None)
Quarter: 2011Q3

REPORT INFORMATION
  Report Type: 
  Country: None (occurrence: None)
  Receive Date: 20110908
  Receipt Date: 20110901
  Transmission Date: 20111222
  Serious: Yes (Other)
  Sender: FDA-Public Use
  Company Number: FR-AMGEN-FRACT2011040714

PATIENT
  Age: 64 Year
  Sex: Male

DRUGS (9)
  1. NEXIUM [Concomitant]
     Indication: DYSPEPSIA
     Dosage: 20 MG, QD
     Route: 048
     Dates: start: 20040101
  2. ASPIRIN [Concomitant]
     Indication: PROPHYLAXIS
     Dosage: 75 MG, QD
     Route: 048
     Dates: start: 20040101
  3. CRESTOR [Concomitant]
     Indication: HYPERCHOLESTEROLAEMIA
     Dosage: UNK UNK, QD
     Route: 048
     Dates: start: 20040101
  4. CLONAZEPAM [Concomitant]
     Indication: MUSCLE SPASMS
     Dosage: UNK UNK, QD
     Route: 048
     Dates: start: 20040101
  5. VERAPAMIL [Concomitant]
     Indication: HYPERTENSION
     Dosage: 120 MG, BID
     Route: 048
     Dates: start: 20000201
  6. ROCALTROL [Concomitant]
     Indication: OSTEOMALACIA
     Dosage: 0.5 MUG, UNK
     Dates: start: 20040101
  7. ASPIRIN [Concomitant]
     Indication: CORONARY ARTERY INSUFFICIENCY
  8. DENOSUMAB [Suspect]
     Indication: BONE GIANT CELL TUMOUR
     Dosage: UNK UNK, QMO
     Route: 042
     Dates: start: 20091215
  9. PHOSPHORE [Concomitant]
     Indication: OSTEOMALACIA
     Dosage: 1500 MG, TID
     Route: 048
     Dates: start: 20100727

REACTIONS (1)
  - OSTEONECROSIS OF JAW [None]
